FAERS Safety Report 12825174 (Version 2)
Quarter: 2017Q4

REPORT INFORMATION
  Report Type: Report from Study
  Country: US (occurrence: US)
  Receive Date: 20161006
  Receipt Date: 20171004
  Transmission Date: 20180320
  Serious: No
  Sender: FDA-Public Use
  Company Number: US-AMGEN-USASL2016070837

PATIENT
  Age: 46 Year
  Sex: Female

DRUGS (2)
  1. PROLIA [Suspect]
     Active Substance: DENOSUMAB
     Indication: BONE DENSITY ABNORMAL
  2. PROLIA [Suspect]
     Active Substance: DENOSUMAB
     Indication: OVARIAN FAILURE
     Dosage: 60 MG, Q6MO
     Route: 065

REACTIONS (1)
  - Off label use [Unknown]
